FAERS Safety Report 16125356 (Version 1)
Quarter: 2019Q1

REPORT INFORMATION
  Report Type: Spontaneous
  Country: US (occurrence: US)
  Receive Date: 20190327
  Receipt Date: 20190327
  Transmission Date: 20190418
  Serious: Yes (Other)
  Sender: FDA-Public Use
  Company Number: US-BEH-2019100622

PATIENT
  Age: 49 Year
  Sex: Female
  Weight: 63.39 kg

DRUGS (23)
  1. PREDNISONE. [Concomitant]
     Active Substance: PREDNISONE
     Indication: ASTHMA
     Dosage: 20 MG, 2 TABS PO IN AM WITH FOOD FOR 3 DAYS PER YELLOW ZONE OF ASTHMA ACTION PLAN
     Route: 048
  2. VENTOLIN HFA [Concomitant]
     Active Substance: ALBUTEROL SULFATE
     Dosage: 90 ?G, PRN (2 PUFFS WITH SPACER EVERY 4 HOURS AS NEEDED WITH SPACER)
     Route: 065
  3. CHILDRENS CHEWABLE VITAMINS [Concomitant]
     Dosage: 2 CHEWABLES , QD
     Route: 065
  4. FOSAMAX [Concomitant]
     Active Substance: ALENDRONATE SODIUM
     Dosage: 1 TAB, OD
     Route: 065
  5. PREDNISONE. [Concomitant]
     Active Substance: PREDNISONE
     Dosage: 15 MG, QD
     Route: 048
  6. ZYRTEC [Concomitant]
     Active Substance: CETIRIZINE HYDROCHLORIDE
     Dosage: 10 MG, QD
     Route: 048
  7. SINGULAIR [Concomitant]
     Active Substance: MONTELUKAST SODIUM
     Dosage: UNK, HS
     Route: 065
  8. BENLYSTA [Concomitant]
     Active Substance: BELIMUMAB
     Dosage: UNK, QW
     Route: 058
  9. HIZENTRA [Suspect]
     Active Substance: HUMAN IMMUNOGLOBULIN G
     Indication: IMMUNODEFICIENCY
     Dosage: 15 G, QW
     Route: 058
     Dates: start: 2015
  10. ALBUTEROL                          /00139501/ [Concomitant]
     Active Substance: ALBUTEROL
     Indication: CHEST DISCOMFORT
     Dosage: 1 VIAL EVERY 4 HOUR, PRN
     Route: 065
  11. EPIPEN [Concomitant]
     Active Substance: EPINEPHRINE
     Indication: ANAPHYLACTIC REACTION
     Dosage: 0.3 MG, PRN
     Route: 065
  12. VORTEX [Concomitant]
     Active Substance: SODIUM FLUORIDE
     Dosage: TO USE WITH INHALER
     Route: 055
  13. CYMBALTA [Concomitant]
     Active Substance: DULOXETINE HYDROCHLORIDE
     Dosage: 60 MG, BID
     Route: 065
  14. LIDOCAINE W/PRILOCAINE [Concomitant]
     Active Substance: LIDOCAINE\PRILOCAINE
     Indication: PREMEDICATION
     Route: 061
  15. BIOTIN [Concomitant]
     Active Substance: BIOTIN
     Dosage: 5000 ?G, OD
     Route: 065
  16. CALCIUM 500+D [Concomitant]
     Active Substance: CALCIUM\VITAMIN D
     Dosage: UNK, QD
     Route: 065
  17. TOPAMAX [Concomitant]
     Active Substance: TOPIRAMATE
     Dosage: 150 MG, QD
     Route: 065
  18. VITAMIN B12 [Concomitant]
     Active Substance: CYANOCOBALAMIN
     Dosage: ONCE A MONTH (QMT)
     Route: 065
  19. IPRATROPIUM BR [Concomitant]
     Dosage: 1 UNIT DOSE IN NEBULIZER, EVERY 6 HRS, PRN
     Route: 065
  20. IMITREX [Concomitant]
     Active Substance: SUMATRIPTAN SUCCINATE
     Dosage: 100 MG, PRN
     Route: 065
  21. NASACORT [Concomitant]
     Active Substance: TRIAMCINOLONE ACETONIDE
     Dosage: 55 ?G 2 SPRAYS PER NOSTRIL, OD
     Route: 045
  22. RANITIDINE. [Concomitant]
     Active Substance: RANITIDINE
     Dosage: 300 MG, DAILY, PRN
     Route: 065
  23. VITAMIN D3 [Concomitant]
     Active Substance: CHOLECALCIFEROL
     Dosage: 3000 IU, QD
     Route: 065

REACTIONS (1)
  - Hepatitis B [Not Recovered/Not Resolved]

NARRATIVE: CASE EVENT DATE: 20180724
